FAERS Safety Report 11151079 (Version 2)
Quarter: 2015Q3

REPORT INFORMATION
  Report Type: Spontaneous
  Country: GB (occurrence: GB)
  Receive Date: 20150601
  Receipt Date: 20150706
  Transmission Date: 20151125
  Serious: Yes (Hospitalization)
  Sender: FDA-Public Use
  Company Number: GB-PFIZER INC-2015174760

PATIENT
  Age: 65 Year
  Sex: Male
  Weight: 58 kg

DRUGS (12)
  1. EPIRUBICIN HCL [Suspect]
     Active Substance: EPIRUBICIN HYDROCHLORIDE
     Indication: GASTROOESOPHAGEAL CANCER
     Dosage: 89 MG, DATE OF MOST RECENT DOSE PRIOR TO EVENT 18/JUL/2013ACTUAL DOSE GIVEN AT MOST RECENT ADMINISTR
     Route: 042
     Dates: start: 20130205
  2. OMEPRAZOLE. [Concomitant]
     Active Substance: OMEPRAZOLE
     Indication: DYSPEPSIA
     Dosage: UNK UNK, 1X/DAY
     Route: 065
     Dates: start: 20130129
  3. GAVISCON [Concomitant]
     Active Substance: ALUMINUM HYDROXIDE\MAGNESIUM CARBONATE
     Indication: DYSPEPSIA
     Dosage: 10 ML, AS NEEDED
     Route: 065
     Dates: start: 20130129
  4. CISPLATIN. [Suspect]
     Active Substance: CISPLATIN
     Indication: GASTROOESOPHAGEAL CANCER
     Dosage: 100 MG, DATE OF MOST RECENT DOSE PRIOR TO EVENT 18/JUL/2013ACTUAL DOSE GIVEN AT MOST RECENT ADMINIST
     Route: 042
     Dates: start: 20130205
  5. ONDANSETRON [Concomitant]
     Active Substance: ONDANSETRON
     Indication: NAUSEA
     Dosage: 8 MG, 2X/DAY
     Route: 065
     Dates: start: 20130205
  6. RAMIPRIL. [Concomitant]
     Active Substance: RAMIPRIL
     Dosage: 10 MG, UNK
     Route: 048
     Dates: start: 20130121
  7. AVASTIN [Suspect]
     Active Substance: BEVACIZUMAB
     Indication: GASTROOESOPHAGEAL CANCER
     Dosage: 500 MG,DATE OF MOST RECENT DOSE PRIOR TO EVENT 18/JUL/2013ACTUAL DOSE GIVEN AT MOST RECENT ADMIN
     Route: 042
     Dates: start: 20130205
  8. LATANOPROST. [Concomitant]
     Active Substance: LATANOPROST
     Indication: GLAUCOMA
     Dosage: 1 GTT, 1X/DAY (DROP BOTH EYES)
     Route: 065
     Dates: start: 20130129
  9. METOCLOPRAMIDE. [Concomitant]
     Active Substance: METOCLOPRAMIDE
     Dosage: 10 MG, 3X/DAY
     Route: 065
     Dates: start: 20130205
  10. XELODA [Suspect]
     Active Substance: CAPECITABINE
     Indication: GASTROOESOPHAGEAL CANCER
     Dosage: 2300 MG, DATE OF MOST RECENT DOSE PRIOR TO EVENT 18/JUL/2013ACTUAL DOSE GIVEN AT MOST RECENT ADMINIS
     Route: 048
     Dates: start: 20130205
  11. TIMOLOL. [Concomitant]
     Active Substance: TIMOLOL
     Indication: GLAUCOMA
     Dosage: 1 GTT, 2X/DAY 1 DROP BOTH EYES
     Route: 065
     Dates: start: 20130129
  12. VERAPAMIL [Concomitant]
     Active Substance: VERAPAMIL HYDROCHLORIDE
     Indication: HYPERTENSION
     Dosage: 240 MG, 2X/DAY
     Route: 065
     Dates: start: 20130226

REACTIONS (3)
  - Decreased appetite [Recovered/Resolved]
  - Fatigue [Recovered/Resolved]
  - Nausea [Recovered/Resolved]

NARRATIVE: CASE EVENT DATE: 20130724
